FAERS Safety Report 9496467 (Version 1)
Quarter: 2013Q3

REPORT INFORMATION
  Report Type: Report from Study
  Country: BR (occurrence: BR)
  Receive Date: 20130904
  Receipt Date: 20130904
  Transmission Date: 20140515
  Serious: Yes (Hospitalization, Other)
  Sender: FDA-Public Use
  Company Number: PHHY2013BR094977

PATIENT
  Age: 73 Year
  Sex: Male

DRUGS (4)
  1. TRILEPTAL [Suspect]
     Indication: DEMENTIA ALZHEIMER^S TYPE
     Dosage: 2 DF, DAILY
     Route: 048
  2. TRILEPTAL [Suspect]
     Indication: OFF LABEL USE
  3. DEPAKENE [Suspect]
     Dosage: 250 MG, PER DAY
     Route: 048
  4. DEPAKENE [Suspect]
     Dosage: 500 MG, PER DAY
     Route: 048

REACTIONS (13)
  - Gastric haemorrhage [Recovered/Resolved]
  - Pneumonia [Recovered/Resolved]
  - Hallucination [Recovered/Resolved]
  - Convulsion [Recovered/Resolved]
  - Dementia Alzheimer^s type [Unknown]
  - Dysstasia [Recovered/Resolved]
  - Fall [Unknown]
  - Aggression [Recovered/Resolved]
  - Dysphagia [Not Recovered/Not Resolved]
  - Abnormal faeces [Recovered/Resolved]
  - Swelling [Recovered/Resolved]
  - Weight increased [Unknown]
  - Hypersomnia [Recovered/Resolved]
